FAERS Safety Report 8379027-3 (Version None)
Quarter: 2012Q2

REPORT INFORMATION
  Report Type: 
  Country: None (occurrence: None)
  Receive Date: 20120522
  Receipt Date: 20120522
  Transmission Date: 20120825
  Serious: Yes (Other)
  Sender: FDA-Public Use
  Company Number: None

PATIENT
  Age: 44 Year
  Sex: Male
  Weight: 105.2345 kg

DRUGS (2)
  1. NEURONTIN [Suspect]
     Indication: NEUROPATHY PERIPHERAL
     Dosage: NEURONTON 3 A DAY 300MG
     Dates: start: 20111201, end: 20120427
  2. LISINOPRIL AND HYDROCHLOROTHIAZIDE [Suspect]
     Indication: BLOOD PRESSURE
     Dosage: 1 A DAY
     Dates: start: 20100901, end: 20120427

REACTIONS (2)
  - RESTLESSNESS [None]
  - INSOMNIA [None]
